FAERS Safety Report 10935732 (Version 3)
Quarter: 2015Q4

REPORT INFORMATION
  Report Type: Report from Study
  Country: GB (occurrence: GB)
  Receive Date: 20150320
  Receipt Date: 20151007
  Transmission Date: 20160304
  Serious: Yes (Hospitalization)
  Sender: FDA-Public Use
  Company Number: GB-B.I. PHARMACEUTICALS,INC./RIDGEFIELD-2015-BI-12325II

PATIENT
  Age: 51 Year
  Sex: Female
  Weight: 67 kg

DRUGS (8)
  1. METOCLOPRAMIDE. [Concomitant]
     Active Substance: METOCLOPRAMIDE
     Indication: NAUSEA
     Dosage: 60 MG
     Route: 048
     Dates: start: 20150223, end: 20150305
  2. BIBF 1120 [Suspect]
     Active Substance: NINTEDANIB
     Indication: OVARIAN CANCER METASTATIC
     Route: 048
     Dates: start: 20150106, end: 20150304
  3. ORAMORPH [Concomitant]
     Active Substance: MORPHINE SULFATE
     Indication: ABDOMINAL PAIN UPPER
     Dosage: DOSE PER APPLICATION: 2.5 MG-7.5 MG; DAILY DOSE: 2.5 MG-7.5 MG PRN
     Route: 048
     Dates: start: 2014, end: 20150305
  4. PARACETAMOL [Concomitant]
     Active Substance: ACETAMINOPHEN
     Indication: ABDOMINAL PAIN UPPER
     Dosage: 4 G
     Route: 048
     Dates: start: 201411, end: 20150305
  5. LEVOMEPROMAZINE [Concomitant]
     Active Substance: LEVOMEPROMAZINE
     Indication: NAUSEA
     Dosage: 6.25 MG
     Route: 048
     Dates: start: 20150108, end: 20150304
  6. IBRUPROFEN [Concomitant]
     Indication: ABDOMINAL PAIN UPPER
     Dosage: 1200 MG
     Route: 048
     Dates: start: 201411, end: 20150305
  7. LANSOPRAZOLE. [Concomitant]
     Active Substance: LANSOPRAZOLE
     Indication: GASTRITIS
     Dosage: 30 MG
     Route: 048
     Dates: start: 2013, end: 20150304
  8. CYCLOPHOSPHAMIDE. [Suspect]
     Active Substance: CYCLOPHOSPHAMIDE
     Indication: OVARIAN CANCER METASTATIC
     Dosage: 100 MG
     Route: 048
     Dates: start: 20150106, end: 20150304

REACTIONS (4)
  - General physical health deterioration [Not Recovered/Not Resolved]
  - Lower respiratory tract infection [Recovered/Resolved]
  - Vomiting [Recovered/Resolved]
  - Diarrhoea [Recovered/Resolved]

NARRATIVE: CASE EVENT DATE: 20150222
